FAERS Safety Report 9096070 (Version 6)
Quarter: 2017Q2

REPORT INFORMATION
  Report Type: Report from Study
  Country: CA (occurrence: CA)
  Receive Date: 20130207
  Receipt Date: 20170619
  Transmission Date: 20170830
  Serious: Yes (Other)
  Sender: FDA-Public Use
  Company Number: PHHY2011CA104558

PATIENT
  Age: 45 Year
  Sex: Female

DRUGS (11)
  1. EXJADE [Suspect]
     Active Substance: DEFERASIROX
     Dosage: 1500 MG, QD
     Route: 048
     Dates: end: 20130201
  2. PENICILLIN NOS [Concomitant]
     Active Substance: PENICILLIN
     Dosage: 500 MG, QD
  3. VITAMIN D [Concomitant]
     Active Substance: CHOLECALCIFEROL
     Dosage: 1000 IU, QD
  4. BENADRYL [Concomitant]
     Active Substance: DIPHENHYDRAMINE HYDROCHLORIDE
     Dosage: UNK UKN, PRN
  5. EXJADE [Suspect]
     Active Substance: DEFERASIROX
     Indication: THALASSAEMIA
     Dosage: 1125 MG, QD
     Route: 048
     Dates: start: 20060706
  6. SYNTHROID [Concomitant]
     Active Substance: LEVOTHYROXINE SODIUM
     Indication: THYROID DISORDER
     Dosage: 0.88 MG, UNK
  7. TUMS [Concomitant]
     Active Substance: CALCIUM CARBONATE
     Dosage: UNK UKN, UNK
  8. EXJADE [Suspect]
     Active Substance: DEFERASIROX
     Dosage: 1125 MG, QD
     Route: 048
     Dates: start: 2007
  9. EXJADE [Suspect]
     Active Substance: DEFERASIROX
     Dosage: 1250 MG, QD
     Route: 048
     Dates: start: 20121222
  10. EXJADE [Suspect]
     Active Substance: DEFERASIROX
     Dosage: 1125 MG, QD
     Route: 048
     Dates: end: 20121109
  11. EXJADE [Suspect]
     Active Substance: DEFERASIROX
     Dosage: 1250 MG, QD
     Route: 048

REACTIONS (13)
  - Oedema peripheral [Recovered/Resolved]
  - Fluid retention [Unknown]
  - Incorrect dose administered [Unknown]
  - Diarrhoea [Unknown]
  - Swelling [Unknown]
  - Drug intolerance [Unknown]
  - Rectal haemorrhage [Unknown]
  - Haemorrhoids [Unknown]
  - Urine analysis abnormal [Unknown]
  - Weight increased [Recovered/Resolved]
  - Face oedema [Recovered/Resolved]
  - Viral upper respiratory tract infection [Unknown]
  - Malaise [Unknown]

NARRATIVE: CASE EVENT DATE: 20121222
